FAERS Safety Report 8623513-5 (Version None)
Quarter: 2012Q3

REPORT INFORMATION
  Report Type: 
  Country: None (occurrence: None)
  Receive Date: 20120827
  Receipt Date: 20120816
  Transmission Date: 20120928
  Serious: Yes (Hospitalization, Other)
  Sender: FDA-Public Use
  Company Number: CN-ASTRAZENECA-2011SE51616

PATIENT
  Age: 75 Year
  Sex: Male
  Weight: 70 kg

DRUGS (3)
  1. PLAVIX [Concomitant]
     Route: 048
  2. NEXIUM [Suspect]
     Route: 048
     Dates: start: 20110801, end: 20110829
  3. ASPIRIN [Concomitant]
     Route: 048

REACTIONS (6)
  - DOCUMENTED HYPERSENSITIVITY TO ADMINISTERED DRUG [None]
  - VOMITING [None]
  - NAUSEA [None]
  - GASTROOESOPHAGEAL REFLUX DISEASE [None]
  - RENAL IMPAIRMENT [None]
  - APLASTIC ANAEMIA [None]
